FAERS Safety Report 10070055 (Version 2)
Quarter: 2014Q2

REPORT INFORMATION
  Report Type: Spontaneous
  Country: IT (occurrence: None)
  Receive Date: 20140408
  Receipt Date: 20140521
  Transmission Date: 20141212
  Serious: Yes (Hospitalization)
  Sender: FDA-Public Use
  Company Number: AUR-APL-2014-04145

PATIENT
  Age: 59 Year
  Sex: Female

DRUGS (2)
  1. CITALOPRAM [Suspect]
     Indication: PRODUCT USED FOR UNKNOWN INDICATION
     Dosage: (15 ML , TOTAL) , ORAL
     Route: 048
     Dates: start: 20140309, end: 20140309
  2. GLICLAZIDE (GLICLAZIDE) [Concomitant]

REACTIONS (6)
  - Muscle contractions involuntary [None]
  - Drug abuse [None]
  - Intentional self-injury [None]
  - Aspartate aminotransferase increased [None]
  - Blood pressure systolic increased [None]
  - Blood glucose increased [None]
